FAERS Safety Report 4759693-1 (Version None)
Quarter: 2005Q3

REPORT INFORMATION
  Report Type: 
  Country: None (occurrence: None)
  Receive Date: 20050826
  Receipt Date: 20050516
  Transmission Date: 20060218
  Serious: No
  Sender: FDA-Public Use
  Company Number: 214533

PATIENT
  Age: 51 Year
  Sex: Male

DRUGS (1)
  1. RAPTIVA (EFALIZUMAB) PWDR + SOLN, 125 MG [Suspect]
     Indication: PSORIASIS
     Dosage: 0.8 MG/KG
     Dates: start: 20040501

REACTIONS (3)
  - LYMPHOCYTE COUNT INCREASED [None]
  - NEUTROPHIL COUNT INCREASED [None]
  - WHITE BLOOD CELL COUNT INCREASED [None]
